FAERS Safety Report 7694734-3 (Version None)
Quarter: 2011Q3

REPORT INFORMATION
  Report Type: 
  Country: None (occurrence: None)
  Receive Date: 20110816
  Receipt Date: 20110803
  Transmission Date: 20111222
  Serious: Yes (Hospitalization)
  Sender: FDA-Public Use
  Company Number: 2011SP002618

PATIENT
  Sex: Female
  Weight: 156.8 kg

DRUGS (26)
  1. ATROVENT [Concomitant]
  2. NASONEX [Concomitant]
  3. TAVIST [Concomitant]
  4. XOPENEX [Suspect]
     Indication: ASTHMA
     Dosage: 0.63 MG/3ML;QD;INHALATION
     Route: 055
     Dates: start: 20070101
  5. ANTIFUNGALS FOR TOPICAL USE [Concomitant]
  6. KLONOPIN [Concomitant]
  7. MAALOX /00082501/ [Concomitant]
  8. XOPENEX HFA [Suspect]
     Indication: ASTHMA
     Dosage: 45 UG; QID; INHALATION
     Route: 055
     Dates: start: 20070101
  9. CINNAMON [Concomitant]
  10. LEVSIN [Concomitant]
  11. METFORMIN HCL [Concomitant]
  12. TOPAMAX [Concomitant]
  13. ALBUTEROL [Concomitant]
  14. MAGNESIUM [Concomitant]
  15. MIRALAX [Concomitant]
  16. MORPHINE [Concomitant]
  17. PAMELOR [Concomitant]
  18. COUMADIN [Concomitant]
  19. HYDROCHLOROTHIAZIDE [Concomitant]
  20. CORTICOSTEROID NOS [Concomitant]
  21. PULMICORT [Concomitant]
  22. TESSALON [Concomitant]
  23. FERROUS SULFATE TAB [Concomitant]
  24. NEXIUM [Concomitant]
  25. SODIUM CHLORIDE [Concomitant]
  26. VITAMIN D [Concomitant]

REACTIONS (7)
  - NEPHROLITHIASIS [None]
  - ECONOMIC PROBLEM [None]
  - INCORRECT DOSE ADMINISTERED [None]
  - ASTHMA [None]
  - PLEURITIC PAIN [None]
  - EXPIRED DRUG ADMINISTERED [None]
  - CONDITION AGGRAVATED [None]
